FAERS Safety Report 10771658 (Version 1)
Quarter: 2015Q1

REPORT INFORMATION
  Report Type: Spontaneous
  Country: NO (occurrence: NO)
  Receive Date: 20150206
  Receipt Date: 20150206
  Transmission Date: 20150721
  Serious: Yes (Other)
  Sender: FDA-Public Use
  Company Number: ALCN2015NO000944

PATIENT
  Age: 55 Year
  Sex: Female

DRUGS (3)
  1. DULOXETINE [Interacting]
     Active Substance: DULOXETINE
     Dosage: UNK
  2. TRAMADOL [Interacting]
     Active Substance: TRAMADOL
     Dosage: UNK
  3. CIPROFLOXACIN. [Suspect]
     Active Substance: CIPROFLOXACIN
     Dosage: UNK
     Route: 047

REACTIONS (2)
  - Drug interaction [Unknown]
  - Serotonin syndrome [Unknown]
